FAERS Safety Report 20452324 (Version 1)
Quarter: 2022Q1

REPORT INFORMATION
  Report Type: Spontaneous
  Country: JP (occurrence: JP)
  Receive Date: 20220210
  Receipt Date: 20220210
  Transmission Date: 20220424
  Serious: Yes (Death, Other)
  Sender: FDA-Public Use
  Company Number: JP-LUOXINA-LUOX-PHC-2022-FEB-08-LIT-0003

PATIENT
  Age: 79 Year
  Sex: Female

DRUGS (1)
  1. TOBRAMYCIN [Suspect]
     Active Substance: TOBRAMYCIN
     Indication: Product used for unknown indication
     Route: 042

REACTIONS (3)
  - Off label use [Unknown]
  - Anti-glomerular basement membrane disease [Recovering/Resolving]
  - Sputum retention [Fatal]
